FAERS Safety Report 16430007 (Version 3)
Quarter: 2019Q3

REPORT INFORMATION
  Report Type: Spontaneous
  Country: JP (occurrence: JP)
  Receive Date: 20190614
  Receipt Date: 20190719
  Transmission Date: 20191004
  Serious: Yes (Hospitalization, Other)
  Sender: FDA-Public Use
  Company Number: JP-PFIZER INC-2019247775

PATIENT
  Age: 63 Year
  Sex: Male

DRUGS (4)
  1. DALACIN S [Suspect]
     Active Substance: CLINDAMYCIN PHOSPHATE
     Indication: BACTERIAL INFECTION
     Dosage: 1200 MG, DAILY (600 MG X 2 A)
     Route: 042
     Dates: start: 20190330, end: 20190331
  2. SAWACILLIN [Suspect]
     Active Substance: AMOXICILLIN
     Dosage: 1 DF, 3X/DAY
     Route: 048
     Dates: start: 20190322, end: 20190324
  3. SAWACILLIN [Suspect]
     Active Substance: AMOXICILLIN
     Dosage: 1 DF, 3X/DAY
     Route: 048
     Dates: start: 20190329, end: 20190331
  4. SAWACILLIN [Suspect]
     Active Substance: AMOXICILLIN
     Dosage: 2 DF, 3X/DAY
     Route: 048
     Dates: start: 20190413, end: 20190415

REACTIONS (1)
  - Enterocolitis haemorrhagic [Recovered/Resolved]

NARRATIVE: CASE EVENT DATE: 20190419
